FAERS Safety Report 8773472 (Version 2)
Quarter: 2012Q4

REPORT INFORMATION
  Report Type: 
  Country: US (occurrence: US)
  Receive Date: 20120907
  Receipt Date: 20121018
  Transmission Date: 20130627
  Serious: Yes (Hospitalization, Other)
  Sender: FDA-Public Use
  Company Number: US-ASTRAZENECA-2012SE69196

PATIENT
  Age: 807 Month
  Sex: Male

DRUGS (22)
  1. NEXIUM [Suspect]
     Route: 048
     Dates: start: 20090312
  2. TOPROL XL [Suspect]
     Route: 048
     Dates: start: 20090312
  3. LISINOPRIL [Suspect]
     Route: 048
  4. FLAGYL [Concomitant]
     Route: 048
  5. MIRALAX [Concomitant]
     Route: 048
  6. CREON [Concomitant]
     Route: 048
  7. PRAVACHOL [Concomitant]
     Route: 048
  8. NASONEX [Concomitant]
     Dosage: 2 sprays NA daily
  9. ASPIRIN [Concomitant]
     Route: 048
  10. TRICOR [Concomitant]
     Route: 048
  11. FISH OIL [Concomitant]
     Route: 048
  12. TRAMADOL HCL [Concomitant]
     Route: 048
  13. CELEBREX [Concomitant]
     Route: 048
  14. AUGMENTIN [Concomitant]
     Route: 048
  15. METRONIDAZOL [Concomitant]
     Route: 048
  16. SODIUM CHLORIDE [Concomitant]
     Dosage: 1000ml @ Q1H1M once
  17. HEPARIN DRIP [Concomitant]
     Dosage: once
  18. LOVAZA [Concomitant]
  19. FLUNISOLIDE [Concomitant]
     Dosage: 2 squirts BID as needed
  20. DORIPENEM [Concomitant]
     Dosage: 100ml @ 25 Q8
  21. COUMADIN [Concomitant]
  22. AMOXICILLIN [Concomitant]

REACTIONS (34)
  - Sepsis [Unknown]
  - Splenic vein thrombosis [Unknown]
  - Portal vein thrombosis [Unknown]
  - Oedema peripheral [Unknown]
  - Scrotal oedema [Unknown]
  - Venous occlusion [Unknown]
  - Enterococcal bacteraemia [Unknown]
  - Hypotension [Unknown]
  - Epistaxis [Unknown]
  - Diverticulum [Unknown]
  - Electrolyte imbalance [Unknown]
  - Aortic aneurysm [Unknown]
  - Diarrhoea [Unknown]
  - Pyrexia [Unknown]
  - Chills [Unknown]
  - Tremor [Unknown]
  - Malaise [Unknown]
  - Nausea [Unknown]
  - Rales [Unknown]
  - International normalised ratio increased [Unknown]
  - Oedema due to renal disease [Unknown]
  - Anuria [Unknown]
  - Hyponatraemia [Recovered/Resolved]
  - Hypokalaemia [Recovered/Resolved]
  - Hypovolaemia [Unknown]
  - Pneumonia bacterial [Recovered/Resolved]
  - Leukocytosis [Recovered/Resolved]
  - Gastroenteritis [Unknown]
  - Renal failure acute [Recovering/Resolving]
  - Anaemia of chronic disease [Unknown]
  - Iron deficiency [Unknown]
  - Hiatus hernia [Unknown]
  - Oesophageal stenosis [Unknown]
  - Musculoskeletal stiffness [Unknown]
